FAERS Safety Report 10610022 (Version 1)
Quarter: 2014Q4

REPORT INFORMATION
  Report Type: Spontaneous
  Country: GB (occurrence: None)
  Receive Date: 20141124
  Receipt Date: 20141124
  Transmission Date: 20150529
  Serious: Yes (Hospitalization)
  Sender: FDA-Public Use
  Company Number: IMP_08215_2014

PATIENT
  Age: 60 Year
  Sex: Male

DRUGS (1)
  1. DANTROLENE [Suspect]
     Active Substance: DANTROLENE
     Indication: MUSCLE SPASMS

REACTIONS (11)
  - Respiratory rate increased [None]
  - Agitation [None]
  - Diaphragmatic disorder [None]
  - Hypercapnia [None]
  - Spinal cord disorder [None]
  - Respiratory acidosis [None]
  - Hypoxia [None]
  - Respiratory failure [None]
  - Dyspnoea [None]
  - Somnolence [None]
  - Fatigue [None]
